FAERS Safety Report 5373242-9 (Version None)
Quarter: 2007Q2

REPORT INFORMATION
  Report Type: 
  Country: None (occurrence: None)
  Receive Date: 20070628
  Receipt Date: 20070625
  Transmission Date: 20071010
  Serious: Yes (Life-Threatening, Hospitalization, Other)
  Sender: FDA-Public Use
  Company Number: PHFR2007GB01826

PATIENT
  Age: 49 Year
  Sex: Male

DRUGS (3)
  1. TRILEPTAL [Suspect]
     Indication: EPILEPSY
     Dosage: 150 MG, BID
     Route: 048
     Dates: start: 20041130
  2. TRILEPTAL [Suspect]
     Dosage: 1800MG/DAY
     Route: 048
  3. TOPIRAMATE [Concomitant]
     Indication: EPILEPSY
     Dosage: 500MG/DAYUNK, UNK
     Route: 048
     Dates: start: 19980101

REACTIONS (5)
  - CONFUSIONAL STATE [None]
  - DRUG ADMINISTRATION ERROR [None]
  - EPILEPSY [None]
  - LETHARGY [None]
  - SKULL FRACTURE [None]
